FAERS Safety Report 24159092 (Version 3)
Quarter: 2025Q3

REPORT INFORMATION
  Report Type: Report from Study
  Country: US (occurrence: US)
  Receive Date: 20240731
  Receipt Date: 20250804
  Transmission Date: 20251020
  Serious: Yes (Other)
  Sender: AURINIA PHARMACEUTICALS
  Company Number: US-AURINIA PHARMACEUTICALS INC.-AUR-006238

PATIENT
  Age: 29 Year
  Sex: Female

DRUGS (12)
  1. LUPKYNIS [Suspect]
     Active Substance: VOCLOSPORIN
     Indication: Lupus nephritis
     Dosage: 23.7 MILLIGRAM, BID
     Route: 048
     Dates: start: 20230318
  2. LUPKYNIS [Suspect]
     Active Substance: VOCLOSPORIN
     Dosage: 7.9 MILLIGRAM, BID
     Route: 048
     Dates: start: 202407
  3. LUPKYNIS [Suspect]
     Active Substance: VOCLOSPORIN
     Dosage: 15.8 MILLIGRAM, BID
     Route: 048
     Dates: start: 2024
  4. LUPKYNIS [Suspect]
     Active Substance: VOCLOSPORIN
     Dosage: 23.7 MILLIGRAM, BID
     Route: 048
     Dates: start: 2024
  5. LUPKYNIS [Suspect]
     Active Substance: VOCLOSPORIN
     Dosage: 23.7 MILLIGRAM, BID
     Route: 048
  6. IRBESARTAN [Concomitant]
     Active Substance: IRBESARTAN
     Indication: Hypertension
     Dosage: 130 MILLIGRAM, QD
     Dates: start: 20240604, end: 20240704
  7. IRBESARTAN [Concomitant]
     Active Substance: IRBESARTAN
     Indication: Lupus nephritis
  8. CELLCEPT [Concomitant]
     Active Substance: MYCOPHENOLATE MOFETIL
     Indication: Lupus nephritis
     Dates: start: 20210608
  9. APIXABAN [Concomitant]
     Active Substance: APIXABAN
     Indication: Embolism venous
     Dates: start: 20160716
  10. APIXABAN [Concomitant]
     Active Substance: APIXABAN
     Indication: May-Thurner syndrome
  11. PREDNISONE [Concomitant]
     Active Substance: PREDNISONE
     Indication: Lupus nephritis
     Dates: start: 20210628
  12. TELMISARTAN [Concomitant]
     Active Substance: TELMISARTAN
     Indication: Lupus nephritis
     Dates: start: 20240705

REACTIONS (2)
  - Cough [Recovered/Resolved]
  - Hypertension [Unknown]

NARRATIVE: CASE EVENT DATE: 20240704
